FAERS Safety Report 7884010-8 (Version None)
Quarter: 2011Q4

REPORT INFORMATION
  Report Type: 
  Country: None (occurrence: None)
  Receive Date: 20111102
  Receipt Date: 20111028
  Transmission Date: 20120403
  Serious: Yes (Death, Hospitalization, Other)
  Sender: FDA-Public Use
  Company Number: PHHY2011BR86870

PATIENT
  Sex: Female

DRUGS (2)
  1. EXELON [Suspect]
     Indication: DEMENTIA ALZHEIMER'S TYPE
     Dosage: 9MG/5CM2 (1 PATCH A DAY)
     Route: 062
     Dates: start: 20110401
  2. EXELON [Suspect]
     Dosage: 18 MG/10CM2
     Route: 062

REACTIONS (7)
  - INFECTION [None]
  - DEMENTIA [None]
  - DEATH [None]
  - PYREXIA [None]
  - DECUBITUS ULCER [None]
  - TREMOR [None]
  - SYNCOPE [None]
